FAERS Safety Report 8808490 (Version 1)
Quarter: 2012Q4

REPORT INFORMATION
  Report Type: Spontaneous
  Country: US (occurrence: None)
  Receive Date: 20120920
  Receipt Date: 20120920
  Transmission Date: 20130627
  Serious: Yes (Other)
  Sender: FDA-Public Use
  Company Number: None

PATIENT
  Age: 21 Year
  Sex: Male
  Weight: 91.63 kg

DRUGS (3)
  1. ZOLOFT [Suspect]
     Indication: OBSESSIVE-COMPULSIVE DISORDER
     Route: 048
     Dates: start: 20090101, end: 20120918
  2. ZOLOFT [Suspect]
     Route: 048
     Dates: start: 20090101, end: 20120918
  3. PROZAC [Suspect]
     Route: 048
     Dates: start: 20090101, end: 20120918

REACTIONS (4)
  - Excessive eye blinking [None]
  - Photophobia [None]
  - Weight increased [None]
  - Gait disturbance [None]
